FAERS Safety Report 6147642-3 (Version None)
Quarter: 2009Q2

REPORT INFORMATION
  Report Type: 
  Country: None (occurrence: None)
  Receive Date: 20090408
  Receipt Date: 20090331
  Transmission Date: 20091009
  Serious: Yes (Hospitalization)
  Sender: FDA-Public Use
  Company Number: US-SANOFI-SYNTHELABO-A03200901402

PATIENT
  Age: 83 Year
  Sex: Male

DRUGS (1)
  1. ELIGARD [Suspect]
     Indication: PROSTATE CANCER
     Route: 058
     Dates: start: 20090210, end: 20090210

REACTIONS (6)
  - DEHYDRATION [None]
  - HEADACHE [None]
  - NAUSEA [None]
  - THROAT IRRITATION [None]
  - VOMITING [None]
  - WEIGHT DECREASED [None]
